FAERS Safety Report 8406813-3 (Version None)
Quarter: 2012Q2

REPORT INFORMATION
  Report Type: 
  Country: None (occurrence: None)
  Receive Date: 20120529
  Receipt Date: 20120515
  Transmission Date: 20120825
  Serious: Yes (Other)
  Sender: FDA-Public Use
  Company Number: AUR-APL-2012-02248

PATIENT
  Age: 80 Year
  Sex: Male
  Weight: 84.6 kg

DRUGS (7)
  1. TRAMADOL HCL [Concomitant]
  2. METFFORMIN HYDROCHLORIDE [Concomitant]
  3. SIMVASTATIN [Concomitant]
  4. LOPERAMIDE [Concomitant]
  5. RAMIPRIL [Suspect]
     Indication: PRODUCT USED FOR UNKNOWN INDICATION
     Dates: start: 20120307
  6. BENDROFLUMETHIAZIDE (BENDROFLUMETHIAZIDE) [Concomitant]
  7. DOUBLEBASE (HYDROMOL) [Concomitant]

REACTIONS (3)
  - SOMNOLENCE [None]
  - DEPRESSION [None]
  - DEPRESSED MOOD [None]
